FAERS Safety Report 20263630 (Version 3)
Quarter: 2022Q1

REPORT INFORMATION
  Report Type: Spontaneous
  Country: US (occurrence: US)
  Receive Date: 20211231
  Receipt Date: 20220131
  Transmission Date: 20220423
  Serious: Yes (Death, Other)
  Sender: FDA-Public Use
  Company Number: US-GLAXOSMITHKLINE-US2021AMR260686

PATIENT
  Age: 42 Year
  Sex: Female

DRUGS (1)
  1. ZEJULA [Suspect]
     Active Substance: NIRAPARIB
     Indication: Ovarian cancer
     Dosage: 200 MG
     Dates: start: 202112, end: 20211227

REACTIONS (10)
  - Death [Fatal]
  - Nausea [Not Recovered/Not Resolved]
  - Pain [Not Recovered/Not Resolved]
  - Oedema peripheral [Not Recovered/Not Resolved]
  - Back pain [Not Recovered/Not Resolved]
  - Insomnia [Unknown]
  - Decreased appetite [Unknown]
  - Urinary tract infection [Unknown]
  - Decreased activity [Not Recovered/Not Resolved]
  - Hospice care [Unknown]

NARRATIVE: CASE EVENT DATE: 20211201
